FAERS Safety Report 8077081-X (Version None)
Quarter: 2011Q4

REPORT INFORMATION
  Report Type: 
  Country: None (occurrence: None)
  Receive Date: 20111221
  Receipt Date: 20110729
  Transmission Date: 20120403
  Serious: Yes (Other)
  Sender: FDA-Public Use
  Company Number: PHHY2011US63628

PATIENT
  Age: 30 Year
  Sex: Female
  Weight: 46.7 kg

DRUGS (1)
  1. EXJADE [Suspect]
     Indication: SICKLE CELL ANAEMIA
     Dosage: 750 MG, DAILY, ORAL
     Route: 048
     Dates: start: 20110707, end: 20110728

REACTIONS (3)
  - HEADACHE [None]
  - HYPOACUSIS [None]
  - EAR DISCOMFORT [None]
